FAERS Safety Report 9045451 (Version 1)
Quarter: 2013Q1

REPORT INFORMATION
  Report Type: Report from Study
  Country: US (occurrence: US)
  Receive Date: 20130131
  Receipt Date: 20130131
  Transmission Date: 20140127
  Serious: No
  Sender: FDA-Public Use
  Company Number: US-ABBOTT-12P-163-0998717-00

PATIENT
  Age: 16 Year
  Sex: Male

DRUGS (9)
  1. HUMIRA [Suspect]
     Indication: PSORIASIS
     Dates: start: 20120923
  2. SINGULAIR [Concomitant]
     Indication: HYPERSENSITIVITY
     Dosage: 10 MG DAILY
  3. CLARINEX [Concomitant]
     Indication: HYPERSENSITIVITY
     Dosage: 5 MG DAILY
  4. CLONIDINE [Concomitant]
     Indication: INSOMNIA
     Dosage: EACH NIGHT
  5. WELLBUTRIN [Concomitant]
     Indication: AFFECTIVE DISORDER
     Dosage: 75 MG DAILY
  6. LAMOTRIGINE [Concomitant]
     Indication: AFFECTIVE DISORDER
     Dosage: 300 MG DAILY
  7. RITALIN [Concomitant]
     Indication: ATTENTION DEFICIT/HYPERACTIVITY DISORDER
     Dosage: 20 MG DAILY
  8. FLUVOXAMINE MALEATE [Concomitant]
     Indication: AFFECTIVE DISORDER
     Dosage: 200 MG DAILY
  9. CONCERTA [Concomitant]
     Indication: ATTENTION DEFICIT/HYPERACTIVITY DISORDER
     Dosage: 72 MG DAILY

REACTIONS (2)
  - Injection site erythema [Recovered/Resolved]
  - Injection site haemorrhage [Recovered/Resolved]
